FAERS Safety Report 20879852 (Version 1)
Quarter: 2022Q2

REPORT INFORMATION
  Report Type: Spontaneous
  Country: JP (occurrence: JP)
  Receive Date: 20220526
  Receipt Date: 20220526
  Transmission Date: 20220721
  Serious: Yes (Hospitalization)
  Sender: FDA-Public Use
  Company Number: JP-UCBJ-CD202100539UCBPHAPROD

PATIENT
  Age: 12 Year
  Sex: Male
  Weight: 23 kg

DRUGS (7)
  1. VIMPAT [Suspect]
     Active Substance: LACOSAMIDE
     Indication: Partial seizures
     Dosage: 50 MILLIGRAM, ONCE DAILY (QD)
     Route: 048
     Dates: start: 20191018
  2. VIMPAT [Suspect]
     Active Substance: LACOSAMIDE
     Dosage: 80 MILLIGRAM, ONCE DAILY (QD)
     Route: 048
  3. VIMPAT [Suspect]
     Active Substance: LACOSAMIDE
     Dosage: 120 MILLIGRAM, ONCE DAILY (QD)
     Route: 048
     Dates: end: 20200923
  4. LEVETIRACETAM [Suspect]
     Active Substance: LEVETIRACETAM
     Indication: Partial seizures
     Dosage: 1300 MILLIGRAM, ONCE DAILY (QD)
     Route: 048
  5. LEVETIRACETAM [Suspect]
     Active Substance: LEVETIRACETAM
     Dosage: 1100 MILLIGRAM, ONCE DAILY (QD)
     Route: 048
  6. LEVETIRACETAM [Suspect]
     Active Substance: LEVETIRACETAM
     Dosage: 1300 MILLIGRAM, ONCE DAILY (QD)
     Route: 048
  7. SULTHIAME [Concomitant]
     Active Substance: SULTHIAME
     Indication: Partial seizures
     Dosage: 300 MILLIGRAM, ONCE DAILY (QD)

REACTIONS (2)
  - Dyskinesia [Recovered/Resolved]
  - Infection [Unknown]

NARRATIVE: CASE EVENT DATE: 20191101
